FAERS Safety Report 10205991 (Version 1)
Quarter: 2014Q2

REPORT INFORMATION
  Report Type: Spontaneous
  Country: US (occurrence: US)
  Receive Date: 20140530
  Receipt Date: 20140530
  Transmission Date: 20141212
  Serious: Yes (Other)
  Sender: FDA-Public Use
  Company Number: US-JNJFOC-20140514370

PATIENT
  Sex: Female

DRUGS (3)
  1. IBUPROFEN [Suspect]
     Indication: BACK PAIN
     Route: 065
  2. BENADRYL [Suspect]
     Indication: PRURITUS
     Route: 048
  3. SKELAXIN [Suspect]
     Indication: BACK PAIN
     Route: 065

REACTIONS (4)
  - Urticaria [Unknown]
  - Peripheral swelling [Unknown]
  - Pruritus [Unknown]
  - Drug ineffective [Unknown]
